FAERS Safety Report 20231097 (Version 1)
Quarter: 2021Q4

REPORT INFORMATION
  Report Type: Spontaneous
  Country: JP (occurrence: JP)
  Receive Date: 20211227
  Receipt Date: 20211227
  Transmission Date: 20220303
  Serious: Yes (Other)
  Sender: FDA-Public Use
  Company Number: JP-TAKEDA-2021TJP025844

PATIENT
  Sex: Male

DRUGS (1)
  1. VECTIBIX [Suspect]
     Active Substance: PANITUMUMAB
     Indication: Colon cancer
     Dosage: 2.4 MILLIGRAM/KILOGRAM
     Route: 042
     Dates: start: 20180501

REACTIONS (2)
  - Skin disorder [Recovered/Resolved]
  - Hypomagnesaemia [Recovered/Resolved]
